FAERS Safety Report 7230987-3 (Version None)
Quarter: 2011Q1

REPORT INFORMATION
  Report Type: 
  Country: None (occurrence: None)
  Receive Date: 20110118
  Receipt Date: 20110111
  Transmission Date: 20110831
  Serious: Yes (Life-Threatening)
  Sender: FDA-Public Use
  Company Number: FR-ROCHE-750126

PATIENT
  Sex: Male
  Weight: 62 kg

DRUGS (11)
  1. METFORMIN HCL [Concomitant]
     Dates: start: 20080118
  2. RAMIPRIL [Concomitant]
     Dates: start: 20090416
  3. PEGINTERFERON ALFA-2A [Suspect]
     Route: 065
     Dates: start: 20100226
  4. ISENTRESS [Concomitant]
     Dates: start: 20090416
  5. LEDERFOLINE [Concomitant]
     Dates: start: 20100708
  6. CRESTOR [Concomitant]
     Dates: start: 20060115
  7. EPOETIN BETA [Suspect]
     Indication: NEUTROPENIA
     Dosage: X 2/WEEK.
     Route: 065
     Dates: start: 20100722
  8. KEPPRA [Concomitant]
     Dates: start: 20060115
  9. INTELENCE [Concomitant]
     Dates: start: 20090416
  10. RIBAVIRIN [Suspect]
     Route: 065
     Dates: start: 20100624
  11. FILGRASTIM [Suspect]
     Dosage: 30 MU/0.5 ML/WEEKS
     Route: 065
     Dates: start: 20100708

REACTIONS (1)
  - B-CELL LYMPHOMA [None]
